FAERS Safety Report 6834225-2 (Version None)
Quarter: 2010Q3

REPORT INFORMATION
  Report Type: 
  Country: None (occurrence: None)
  Receive Date: 20100712
  Receipt Date: 20070412
  Transmission Date: 20110219
  Serious: No
  Sender: FDA-Public Use
  Company Number: US-PFIZER INC-2007029950

PATIENT
  Sex: Female
  Weight: 47.63 kg

DRUGS (4)
  1. CHANTIX [Suspect]
     Indication: SMOKING CESSATION THERAPY
     Dates: start: 20070402
  2. ATIVAN [Concomitant]
  3. SEROQUEL [Concomitant]
  4. LEXAPRO [Concomitant]

REACTIONS (1)
  - INCORRECT DOSE ADMINISTERED [None]
